FAERS Safety Report 16798218 (Version 1)
Quarter: 2019Q4

REPORT INFORMATION
  Report Type: Spontaneous
  Country: US (occurrence: US)
  Receive Date: 20190911
  Receipt Date: 20190911
  Transmission Date: 20200122
  Serious: Yes (Hospitalization)
  Sender: FDA-Public Use
  Company Number: None

PATIENT
  Age: 41 Year
  Sex: Female

DRUGS (11)
  1. DEXILANT [Concomitant]
     Active Substance: DEXLANSOPRAZOLE
     Dates: start: 20180530
  2. GLATIRAMER [Suspect]
     Active Substance: GLATIRAMER
     Indication: MULTIPLE SCLEROSIS
     Dosage: ?          OTHER FREQUENCY:3 TIMES PER WEEK;?
     Route: 058
     Dates: start: 20190628
  3. ATIVAN [Concomitant]
     Active Substance: LORAZEPAM
     Dates: start: 20180530
  4. AMANTADINE. [Concomitant]
     Active Substance: AMANTADINE HYDROCHLORIDE
     Dates: start: 20181207
  5. DILANTIN [Concomitant]
     Active Substance: PHENYTOIN
     Dates: start: 20180530
  6. STOOL SOFTNR [Concomitant]
     Dates: start: 20180530
  7. ZOFRAN [Concomitant]
     Active Substance: ONDANSETRON HYDROCHLORIDE
     Dates: start: 20180530
  8. LYRICA [Concomitant]
     Active Substance: PREGABALIN
     Dates: start: 20180530
  9. FIORICET [Concomitant]
     Active Substance: ACETAMINOPHEN\BUTALBITAL\CAFFEINE
     Dates: start: 20180530
  10. KLONOPIN [Concomitant]
     Active Substance: CLONAZEPAM
     Dates: start: 20180530
  11. AMBIEN [Concomitant]
     Active Substance: ZOLPIDEM TARTRATE
     Dates: start: 20180530

REACTIONS (1)
  - Unresponsive to stimuli [None]
